FAERS Safety Report 9179454 (Version 1)
Quarter: 2013Q1

REPORT INFORMATION
  Report Type: Spontaneous
  Country: US (occurrence: US)
  Receive Date: 20130321
  Receipt Date: 20130321
  Transmission Date: 20140127
  Serious: No
  Sender: FDA-Public Use
  Company Number: US-BAYER-2013-034507

PATIENT
  Age: 48 Year
  Sex: Female
  Weight: 87 kg

DRUGS (14)
  1. BETASERON [Suspect]
     Dosage: 0.25 MG, QOD
     Route: 058
  2. TOPAMAX [Concomitant]
     Dosage: 100 MG, UNK
  3. BENTYL [Concomitant]
     Dosage: 10 MG, UNK
  4. LIPITOR [Concomitant]
     Dosage: 10 MG, UNK
  5. LISINOPRIL [Concomitant]
     Dosage: 20 MG, UNK
  6. BACLOFEN [Concomitant]
     Dosage: 20 MG, UNK
  7. ZANAFLEX [Concomitant]
     Dosage: 2 MG, UNK
  8. MIRALAX [Concomitant]
     Dosage: 3350 NF
  9. LEVOTHYROXINE SODIUM [Concomitant]
     Dosage: 100 ?G, UNK
  10. MULTIVITAMIN [Concomitant]
  11. REBIF [Concomitant]
     Dosage: 22/0.5
  12. NUVIGIL [Concomitant]
     Dosage: 150 MG, UNK
  13. OMEGA-3 [Concomitant]
  14. FISH OIL [Concomitant]

REACTIONS (2)
  - Injection site urticaria [Unknown]
  - Injection site pain [Unknown]
